FAERS Safety Report 6358276-X (Version None)
Quarter: 2009Q3

REPORT INFORMATION
  Report Type: 
  Country: None (occurrence: None)
  Receive Date: 20090916
  Receipt Date: 20090909
  Transmission Date: 20100115
  Serious: Yes (Hospitalization, Other)
  Sender: FDA-Public Use
  Company Number: BR-ABBOTT-09P-020-0596256-00

PATIENT
  Sex: Male

DRUGS (1)
  1. HUMIRA [Suspect]
     Indication: CROHN'S DISEASE
     Dosage: INDUCTION DOSE: 160MG, THEN 80MG AND A MAINTENANCE DOSE OF 40MG EVERY 14 DAYS.
     Route: 058
     Dates: start: 20070901

REACTIONS (1)
  - HOSPITALISATION [None]
